FAERS Safety Report 24388426 (Version 1)
Quarter: 2024Q4

REPORT INFORMATION
  Report Type: Report from Study
  Country: US (occurrence: US)
  Receive Date: 20241002
  Receipt Date: 20241002
  Transmission Date: 20250114
  Serious: Yes (Hospitalization)
  Sender: PFIZER
  Company Number: US-SEATTLE GENETICS-2020SGN03211

PATIENT
  Age: 72 Year
  Sex: Female

DRUGS (18)
  1. TUKYSA [Suspect]
     Active Substance: TUCATINIB
     Indication: Breast cancer female
     Dosage: 300 MG, 2X/DAY
     Route: 048
     Dates: start: 201607
  2. TUKYSA [Suspect]
     Active Substance: TUCATINIB
     Dosage: 150 MG
     Route: 048
     Dates: start: 20200716
  3. TUKYSA [Suspect]
     Active Substance: TUCATINIB
     Dosage: 150 MG
     Route: 048
     Dates: start: 20200716
  4. TUKYSA [Suspect]
     Active Substance: TUCATINIB
     Dosage: 150 MG
     Route: 048
     Dates: start: 20200716
  5. TUKYSA [Suspect]
     Active Substance: TUCATINIB
     Dosage: 300 MG, BID (TWO TIMES A DAY)
     Route: 048
     Dates: start: 202007
  6. TUKYSA [Suspect]
     Active Substance: TUCATINIB
     Dosage: 300 MG, BID (TWO TIMES A DAY)
     Route: 048
     Dates: start: 202007
  7. TUKYSA [Suspect]
     Active Substance: TUCATINIB
     Dosage: 300 MG, BID (TWO TIMES A DAY)
     Route: 048
     Dates: start: 202007
  8. TUKYSA [Suspect]
     Active Substance: TUCATINIB
     Dosage: UNK
     Route: 048
     Dates: start: 20201125
  9. TUKYSA [Suspect]
     Active Substance: TUCATINIB
     Dosage: UNK
     Route: 048
     Dates: start: 20201125
  10. TUKYSA [Suspect]
     Active Substance: TUCATINIB
     Dosage: 250 MG
     Route: 048
     Dates: start: 20201201
  11. TUKYSA [Suspect]
     Active Substance: TUCATINIB
     Dosage: 250 MG
     Route: 048
     Dates: start: 20201201
  12. TUKYSA [Suspect]
     Active Substance: TUCATINIB
     Dosage: UNK
     Route: 048
  13. TUKYSA [Suspect]
     Active Substance: TUCATINIB
     Dosage: UNK
     Route: 048
  14. DOXYCYCLINE HYCLATE [Suspect]
     Active Substance: DOXYCYCLINE HYCLATE
     Dosage: UNK
  15. HERCEPTIN [Suspect]
     Active Substance: TRASTUZUMAB
     Indication: Breast cancer metastatic
     Dosage: UNK
  16. XELODA [Suspect]
     Active Substance: CAPECITABINE
     Indication: Breast cancer metastatic
     Dosage: UNK
  17. XELODA [Suspect]
     Active Substance: CAPECITABINE
     Dosage: UNK
     Dates: start: 20201125
  18. XELODA [Suspect]
     Active Substance: CAPECITABINE
     Dosage: 1150 MG
     Dates: start: 20201201

REACTIONS (15)
  - Retching [Unknown]
  - Vomiting [Unknown]
  - Dizziness [Unknown]
  - Balance disorder [Unknown]
  - Disorientation [Unknown]
  - Blood pressure fluctuation [Recovered/Resolved]
  - Localised infection [Unknown]
  - Blister [Unknown]
  - Blood blister [Unknown]
  - Headache [Unknown]
  - Palmar-plantar erythrodysaesthesia syndrome [Recovering/Resolving]
  - Skin exfoliation [Unknown]
  - Skin discolouration [Unknown]
  - Nausea [Recovered/Resolved]
  - Diarrhoea [Recovered/Resolved]

NARRATIVE: CASE EVENT DATE: 20200720
